FAERS Safety Report 18198592 (Version 2)
Quarter: 2020Q3

REPORT INFORMATION
  Report Type: Spontaneous
  Country: ES (occurrence: ES)
  Receive Date: 20200826
  Receipt Date: 20200910
  Transmission Date: 20201103
  Serious: Yes (Other)
  Sender: FDA-Public Use
  Company Number: ES-AMGEN-ESPSP2020135704

PATIENT
  Age: 59 Year
  Sex: Female

DRUGS (1)
  1. ROMIPLOSTIM [Suspect]
     Active Substance: ROMIPLOSTIM
     Indication: IMMUNE THROMBOCYTOPENIA
     Dosage: 125 MICROGRAM, QWK
     Route: 058
     Dates: start: 20190508, end: 20190605

REACTIONS (4)
  - Fibrin D dimer increased [Unknown]
  - Thrombocytopenia [Unknown]
  - Papilloedema [Unknown]
  - Cerebral venous sinus thrombosis [Recovering/Resolving]
